FAERS Safety Report 5047819-4 (Version None)
Quarter: 2006Q3

REPORT INFORMATION
  Report Type: 
  Country: None (occurrence: None)
  Receive Date: 20060710
  Receipt Date: 20060710
  Transmission Date: 20061208
  Serious: Yes (Life-Threatening, Hospitalization)
  Sender: FDA-Public Use
  Company Number: None

PATIENT
  Age: 76 Year
  Sex: Female
  Weight: 60.3284 kg

DRUGS (2)
  1. BARIUM [Suspect]
     Indication: GASTRIC DISORDER
     Dosage: 1 QUART W/O CONTRATE
     Dates: start: 20060615, end: 20060615
  2. BARIUM [Suspect]
     Indication: NASOPHARYNGEAL DISORDER
     Dosage: 1 QUART W/O CONTRATE
     Dates: start: 20060615, end: 20060615

REACTIONS (3)
  - BLOOD SODIUM DECREASED [None]
  - NAUSEA [None]
  - WEIGHT DECREASED [None]
